FAERS Safety Report 9589882 (Version 1)
Quarter: 2013Q4

REPORT INFORMATION
  Report Type: Spontaneous
  Country: US (occurrence: US)
  Receive Date: 20131003
  Receipt Date: 20131003
  Transmission Date: 20140711
  Serious: No
  Sender: FDA-Public Use
  Company Number: US-AMGEN-USASP2012073010

PATIENT
  Sex: Female

DRUGS (9)
  1. ENBREL [Suspect]
     Indication: PRODUCT USED FOR UNKNOWN INDICATION
     Dosage: 50 MG/ML, QWK
     Route: 058
  2. CENTRUM SILVER                     /02363801/ [Concomitant]
     Dosage: UNK
  3. SYNTHROID [Concomitant]
     Dosage: 112 MUG, UNK
  4. FOLIC ACID [Concomitant]
     Dosage: 1 MG, UNK
  5. FISH OIL [Concomitant]
     Dosage: UNK
  6. VITAMIN D                          /00107901/ [Concomitant]
     Dosage: 1000 UNIT, UNK
  7. COQ10                              /00517201/ [Concomitant]
     Dosage: 100 MG, UNK
  8. ASPIRIN [Concomitant]
     Dosage: 81 MG, UNK
  9. CYTOMEL [Concomitant]
     Dosage: 25 MUG, UNK

REACTIONS (2)
  - Arthralgia [Unknown]
  - Muscle strain [Unknown]
